FAERS Safety Report 18329860 (Version 1)
Quarter: 2020Q3

REPORT INFORMATION
  Report Type: Spontaneous
  Country: US (occurrence: US)
  Receive Date: 20200930
  Receipt Date: 20200930
  Transmission Date: 20201103
  Serious: Yes (Disabling, Other)
  Sender: FDA-Public Use
  Company Number: None

PATIENT
  Age: 8 Year
  Sex: Female
  Weight: 24.3 kg

DRUGS (8)
  1. CLOBETASOL [Concomitant]
     Active Substance: CLOBETASOL
  2. MUPIROCIN. [Concomitant]
     Active Substance: MUPIROCIN
  3. FLONASE EYE DROPS [Concomitant]
  4. HYDROXYZINE HYDROCHLORIDE SYRUP ORAL SOLUTION10 MG PER 5 ML ALCOHOL FR [Suspect]
     Active Substance: HYDROXYZINE HYDROCHLORIDE
     Indication: HYPERSENSITIVITY
     Dosage: ?          QUANTITY:7.5 TEASPOON(S);?
     Route: 048
     Dates: start: 20200512, end: 20200925
  5. EUCERIN [Concomitant]
     Active Substance: ENSULIZOLE\EUCERIN\OCTINOXATE\OCTISALATE\TITANIUM DIOXIDE\ZINC OXIDE
  6. OTC CREAMS BLEACH BATHS [Concomitant]
  7. CETRIZINE [Concomitant]
     Active Substance: CETIRIZINE HYDROCHLORIDE
  8. HYDROXYZINE HYDROCHLORIDE SYRUP ORAL SOLUTION10 MG PER 5 ML ALCOHOL FR [Suspect]
     Active Substance: HYDROXYZINE HYDROCHLORIDE
     Indication: ECZEMA
     Dosage: ?          QUANTITY:7.5 TEASPOON(S);?
     Route: 048
     Dates: start: 20200512, end: 20200925

REACTIONS (10)
  - Abdominal pain upper [None]
  - Skin infection [None]
  - Fatigue [None]
  - Rash [None]
  - Pain [None]
  - Pyrexia [None]
  - Suspected product quality issue [None]
  - Product odour abnormal [None]
  - Haemorrhage [None]
  - Oropharyngeal pain [None]

NARRATIVE: CASE EVENT DATE: 20200512
